FAERS Safety Report 23230138 (Version 3)
Quarter: 2024Q2

REPORT INFORMATION
  Report Type: Spontaneous
  Country: US (occurrence: US)
  Receive Date: 20231127
  Receipt Date: 20240522
  Transmission Date: 20240716
  Serious: No
  Sender: FDA-Public Use
  Company Number: US-BRISTOL-MYERS SQUIBB COMPANY-2023-156267

PATIENT
  Age: 65 Year
  Sex: Male

DRUGS (1)
  1. ZEPOSIA [Suspect]
     Active Substance: OZANIMOD HYDROCHLORIDE
     Indication: Multiple sclerosis
     Route: 048
     Dates: start: 202307

REACTIONS (8)
  - Neck pain [Unknown]
  - Hypertension [Unknown]
  - Gait disturbance [Unknown]
  - Insomnia [Unknown]
  - Affective disorder [Unknown]
  - Quality of life decreased [Unknown]
  - Pain [Unknown]
  - Headache [Unknown]
